FAERS Safety Report 10061961 (Version 1)
Quarter: 2014Q2

REPORT INFORMATION
  Report Type: Report from Study
  Country: JP (occurrence: JP)
  Receive Date: 20140407
  Receipt Date: 20140407
  Transmission Date: 20141212
  Serious: Yes (Other)
  Sender: FDA-Public Use
  Company Number: JP-ASTELLAS-2014JP003089

PATIENT
  Age: 0 Day
  Sex: 0

DRUGS (19)
  1. TACROLIMUS CAPSULES [Suspect]
     Indication: FOETAL EXPOSURE DURING PREGNANCY
     Dosage: 1.5 MG, UNKNOWN/D
     Route: 064
     Dates: start: 2012, end: 20121005
  2. PREDNISOLONE [Concomitant]
     Indication: FOETAL EXPOSURE DURING PREGNANCY
     Dosage: 10 MG, UNKNOWN/D
     Route: 064
     Dates: start: 2012, end: 20121002
  3. PREDNISOLONE [Concomitant]
     Dosage: 15 MG, UNKNOWN/D
     Route: 064
     Dates: start: 20121003, end: 20121130
  4. PREDNISOLONE [Concomitant]
     Dosage: 30 MG, UNKNOWN/D
     Route: 064
     Dates: start: 20121201, end: 20121228
  5. PREDNISOLONE [Concomitant]
     Dosage: 25 MG, UNKNOWN/D
     Route: 064
     Dates: start: 20121229, end: 20130111
  6. PREDNISOLONE [Concomitant]
     Dosage: 20 MG, UNKNOWN/D
     Route: 064
     Dates: start: 20130112, end: 20130122
  7. PREDNISOLONE [Concomitant]
     Dosage: 18 MG, UNKNOWN/D
     Route: 064
     Dates: start: 20130123, end: 20130226
  8. PREDNISOLONE [Concomitant]
     Dosage: 16 MG, UNKNOWN/D
     Route: 064
     Dates: start: 20130227, end: 20130320
  9. MUCODYNE [Concomitant]
     Indication: FOETAL EXPOSURE DURING PREGNANCY
     Route: 064
  10. ACINON [Concomitant]
     Indication: FOETAL EXPOSURE DURING PREGNANCY
     Route: 064
  11. SALIGREN [Concomitant]
     Indication: FOETAL EXPOSURE DURING PREGNANCY
     Dosage: UNK
     Route: 064
  12. BAYASPIRIN [Concomitant]
     Indication: FOETAL EXPOSURE DURING PREGNANCY
     Dosage: UNK
     Route: 064
  13. THYRADIN [Concomitant]
     Indication: FOETAL EXPOSURE DURING PREGNANCY
     Dosage: UNK
     Route: 064
  14. DEPAS [Concomitant]
     Indication: FOETAL EXPOSURE DURING PREGNANCY
     Dosage: UNK
     Route: 064
  15. GLAKAY [Concomitant]
     Indication: FOETAL EXPOSURE DURING PREGNANCY
     Dosage: UNK
     Route: 064
  16. COMELIAN [Concomitant]
     Indication: FOETAL EXPOSURE DURING PREGNANCY
     Route: 064
  17. VITAMEDIN                          /00274301/ [Concomitant]
     Indication: FOETAL EXPOSURE DURING PREGNANCY
     Route: 064
  18. ALFAROL [Concomitant]
     Indication: FOETAL EXPOSURE DURING PREGNANCY
     Route: 064
  19. BONALON [Concomitant]
     Indication: FOETAL EXPOSURE DURING PREGNANCY
     Dosage: UNK
     Route: 064

REACTIONS (1)
  - Foetal distress syndrome [Unknown]
